FAERS Safety Report 6116653-6 (Version None)
Quarter: 2009Q1

REPORT INFORMATION
  Report Type: 
  Country: None (occurrence: None)
  Receive Date: 20090314
  Receipt Date: 20081222
  Transmission Date: 20090719
  Serious: No
  Sender: FDA-Public Use
  Company Number: US-ABBOTT-08P-163-0494556-00

PATIENT
  Sex: Female
  Weight: 90.8 kg

DRUGS (11)
  1. HUMIRA [Suspect]
     Indication: CROHN'S DISEASE
     Route: 058
     Dates: start: 20070801
  2. POTASSIUM CHLORIDE [Concomitant]
     Indication: HYPERTENSION
     Route: 048
  3. HYDROCHLOROTHIAZIDE [Concomitant]
     Indication: HYPERTENSION
     Route: 048
  4. DILTIAZEM CD [Concomitant]
     Indication: HYPERTENSION
     Route: 048
  5. VENLAFAXINE HCL [Concomitant]
     Indication: DEPRESSION
     Route: 048
  6. BUPROPION HCL [Concomitant]
     Indication: DEPRESSION
     Route: 048
  7. FIBER THERAPY [Concomitant]
     Indication: CROHN'S DISEASE
     Route: 048
  8. ASPIRIN [Concomitant]
     Indication: DRUG USE FOR UNKNOWN INDICATION
     Route: 048
  9. LEVBID [Concomitant]
     Indication: CROHN'S DISEASE
     Route: 048
  10. AMITIZIA [Concomitant]
     Indication: CROHN'S DISEASE
     Route: 048
  11. PROMETHAZINE [Concomitant]
     Indication: NAUSEA
     Route: 048

REACTIONS (5)
  - ASTHENIA [None]
  - FOLLICULITIS [None]
  - INCORRECT DOSE ADMINISTERED [None]
  - INFLUENZA [None]
  - INJECTION SITE PAIN [None]
